FAERS Safety Report 18225633 (Version 2)
Quarter: 2020Q3

REPORT INFORMATION
  Report Type: Spontaneous
  Country: US (occurrence: US)
  Receive Date: 20200903
  Receipt Date: 20200916
  Transmission Date: 20201103
  Serious: Yes (Life-Threatening, Hospitalization, Other)
  Sender: FDA-Public Use
  Company Number: US-AUROBINDO-AUR-APL-2020-045424

PATIENT
  Age: 35 Year
  Sex: Female

DRUGS (2)
  1. LAMOTRIGINE. [Concomitant]
     Active Substance: LAMOTRIGINE
     Indication: PRODUCT USED FOR UNKNOWN INDICATION
     Dosage: UNK
     Route: 065
  2. QUETIAPINE. [Suspect]
     Active Substance: QUETIAPINE
     Indication: PRODUCT USED FOR UNKNOWN INDICATION
     Dosage: 36 GRAM, 1 TOTAL
     Route: 048

REACTIONS (18)
  - Mucosal disorder [Unknown]
  - Circulatory collapse [Recovering/Resolving]
  - Lung infiltration [Recovering/Resolving]
  - Dysarthria [Unknown]
  - White blood cell count increased [Recovered/Resolved]
  - Non-cardiogenic pulmonary oedema [Recovering/Resolving]
  - Somnolence [Unknown]
  - Electrocardiogram QT prolonged [Recovering/Resolving]
  - Drug level increased [Recovering/Resolving]
  - Hypotension [Recovering/Resolving]
  - Encephalopathy [Recovering/Resolving]
  - Pleural effusion [Recovering/Resolving]
  - Status epilepticus [Recovering/Resolving]
  - Depressed level of consciousness [Recovering/Resolving]
  - Tachycardia [Unknown]
  - Intentional overdose [Recovering/Resolving]
  - Hypoxia [Recovering/Resolving]
  - Toxicity to various agents [Unknown]
